FAERS Safety Report 6509629-8 (Version None)
Quarter: 2009Q4

REPORT INFORMATION
  Report Type: 
  Country: None (occurrence: None)
  Receive Date: 20091222
  Receipt Date: 20091215
  Transmission Date: 20100525
  Serious: Yes (Death)
  Sender: FDA-Public Use
  Company Number: JP-ABBOTT-09P-087-0612423-00

PATIENT
  Age: 82 Year
  Sex: Male

DRUGS (5)
  1. LEUPLIN SR FOR INJECTION 11.25 MG [Suspect]
     Indication: PROSTATE CANCER STAGE IV
     Route: 058
     Dates: start: 20061128, end: 20071030
  2. BICALUTAMIDE [Concomitant]
     Indication: PROSTATE CANCER STAGE IV
     Route: 048
     Dates: end: 20080130
  3. OXYCONTIN [Concomitant]
     Indication: CANCER PAIN
     Dates: end: 20070109
  4. OXYCONTIN [Concomitant]
     Route: 048
     Dates: start: 20070109, end: 20070319
  5. OXYCONTIN [Concomitant]
     Route: 048
     Dates: start: 20070320, end: 20071113

REACTIONS (4)
  - DRUG RESISTANCE [None]
  - MALIGNANT NEOPLASM PROGRESSION [None]
  - METASTASES TO BONE [None]
  - PROSTATE CANCER [None]
